FAERS Safety Report 6473064-1 (Version None)
Quarter: 2009Q4

REPORT INFORMATION
  Report Type: 
  Country: None (occurrence: None)
  Receive Date: 20091204
  Receipt Date: 20091201
  Transmission Date: 20100525
  Serious: Yes (Hospitalization)
  Sender: FDA-Public Use
  Company Number: ES-EISAI INC.-E2080-00225-SPO-ES

PATIENT
  Age: 9 Year
  Sex: Male
  Weight: 30 kg

DRUGS (7)
  1. INOVELON [Suspect]
     Indication: LENNOX-GASTAUT SYNDROME
     Route: 048
     Dates: start: 20090921, end: 20090901
  2. INOVELON [Suspect]
     Route: 048
     Dates: start: 20090901, end: 20090901
  3. INOVELON [Suspect]
     Route: 048
     Dates: start: 20090901, end: 20091111
  4. VALPROIC ACID [Concomitant]
     Route: 048
     Dates: end: 20091111
  5. ETHOSUXIMIDE [Concomitant]
     Route: 048
     Dates: end: 20091111
  6. PHENOBARBITAL [Concomitant]
     Route: 048
     Dates: end: 20091111
  7. PHENOBARBITAL [Concomitant]
     Dosage: UNKNOWN
     Dates: start: 20091130

REACTIONS (3)
  - HEPATIC FAILURE [None]
  - RENAL FAILURE [None]
  - VOMITING [None]
